FAERS Safety Report 5196568-0 (Version None)
Quarter: 2006Q4

REPORT INFORMATION
  Report Type: 
  Country: None (occurrence: None)
  Receive Date: 20061229
  Receipt Date: 20061229
  Transmission Date: 20070319
  Serious: No
  Sender: FDA-Public Use
  Company Number: None

PATIENT
  Sex: Female
  Weight: 54.8852 kg

DRUGS (1)
  1. VIVAGLOBULIN [Suspect]
     Indication: IMMUNODEFICIENCY COMMON VARIABLE
     Dosage: 8 GM  WEEKLY  SQ
     Route: 058
     Dates: start: 20061101, end: 20061201

REACTIONS (2)
  - INJECTION SITE REACTION [None]
  - NO REACTION ON PREVIOUS EXPOSURE TO DRUG [None]
